FAERS Safety Report 15737516 (Version 1)
Quarter: 2018Q4

REPORT INFORMATION
  Report Type: Spontaneous
  Country: US (occurrence: US)
  Receive Date: 20181219
  Receipt Date: 20181219
  Transmission Date: 20190205
  Serious: Yes (Other)
  Sender: FDA-Public Use
  Company Number: US-TEVA-2018-US-989084

PATIENT
  Age: 57 Year
  Sex: Male

DRUGS (9)
  1. DOLUTEGRAVIR [Concomitant]
     Active Substance: DOLUTEGRAVIR
     Indication: HIV INFECTION
     Route: 065
     Dates: start: 201708
  2. WARFARIN [Interacting]
     Active Substance: WARFARIN
     Indication: HYPERCOAGULATION
     Dosage: ON MONDAY, TUESDAY, THURSDAY, AND SATURDAY (CURRENT REGIMEN)
     Route: 065
  3. WARFARIN [Suspect]
     Active Substance: WARFARIN
     Indication: HYPERCOAGULATION
     Dosage: INITIAL DOSAGE NOT STATED
     Route: 065
     Dates: start: 2005
  4. DARUNAVIR/COBICISTAT [Interacting]
     Active Substance: COBICISTAT\DARUNAVIR ETHANOLATE
     Indication: HIV INFECTION
     Route: 065
     Dates: start: 201708
  5. LOPINAVIR/RITONAVIR [Interacting]
     Active Substance: LOPINAVIR\RITONAVIR
     Indication: HIV INFECTION
     Dosage: TWICE DAILY
     Route: 065
  6. MARAVIROC [Suspect]
     Active Substance: MARAVIROC
     Indication: HIV INFECTION
     Dosage: TWICE DIALY
     Route: 065
  7. EMTRICITABINE [Suspect]
     Active Substance: EMTRICITABINE
     Indication: HIV INFECTION
     Dosage: DAILY
     Route: 065
  8. WARFARIN [Interacting]
     Active Substance: WARFARIN
     Indication: HYPERCOAGULATION
     Dosage: SUNDAY, WEDNESDAY AND FRIDAY (CURRENT REGIMEN)
     Route: 065
  9. RALTEGRAVIR. [Suspect]
     Active Substance: RALTEGRAVIR
     Indication: HIV INFECTION
     Dosage: TWICE DAILY
     Route: 065

REACTIONS (3)
  - Anticoagulation drug level above therapeutic [Recovered/Resolved]
  - Immune reconstitution inflammatory syndrome [Unknown]
  - Drug interaction [Recovered/Resolved]
